FAERS Safety Report 19881797 (Version 1)
Quarter: 2021Q3

REPORT INFORMATION
  Report Type: Spontaneous
  Country: CA (occurrence: CA)
  Receive Date: 20210924
  Receipt Date: 20210924
  Transmission Date: 20211014
  Serious: Yes (Other)
  Sender: FDA-Public Use
  Company Number: CA-TEVA-2021-CA-1956486

PATIENT
  Age: 12 Year
  Sex: Male
  Weight: 84 kg

DRUGS (8)
  1. SOLARCAINE FIRST AIDLIDOCAINE SPRAY [BENZOCAINE\TRICLOSAN] [Suspect]
     Active Substance: BENZOCAINE\TRICLOSAN
     Indication: INDUCTION OF ANAESTHESIA
     Route: 061
  2. SEVOFLURANE. [Suspect]
     Active Substance: SEVOFLURANE
     Indication: MAINTENANCE OF ANAESTHESIA
     Route: 055
  3. ROCURONIUM [Suspect]
     Active Substance: ROCURONIUM BROMIDE
     Indication: ANAESTHESIA PROCEDURE
     Route: 065
  4. FENTANYL. [Suspect]
     Active Substance: FENTANYL
     Indication: INDUCTION OF ANAESTHESIA
     Route: 065
  5. PROPOFOL. [Suspect]
     Active Substance: PROPOFOL
     Indication: INDUCTION OF ANAESTHESIA
     Route: 065
  6. ATENOLOL. [Concomitant]
     Active Substance: ATENOLOL
     Indication: GENE MUTATION
     Route: 065
  7. SODIUM CHLORIDE. [Suspect]
     Active Substance: SODIUM CHLORIDE
     Indication: ANAESTHESIA PROCEDURE
     Route: 042
  8. LOSARTAN POTASSIUM. [Concomitant]
     Active Substance: LOSARTAN POTASSIUM
     Indication: GENE MUTATION

REACTIONS (2)
  - Pulse absent [Not Recovered/Not Resolved]
  - Hypotension [Not Recovered/Not Resolved]
